FAERS Safety Report 20607545 (Version 1)
Quarter: 2022Q1

REPORT INFORMATION
  Report Type: Spontaneous
  Country: BR (occurrence: BR)
  Receive Date: 20220317
  Receipt Date: 20220317
  Transmission Date: 20220424
  Serious: Yes (Other)
  Sender: FDA-Public Use
  Company Number: BR-TAKEDA-2022TUS017699

PATIENT
  Sex: Female

DRUGS (1)
  1. MESALAMINE [Suspect]
     Active Substance: MESALAMINE
     Indication: Gastrointestinal disorder
     Dosage: 800 MILLIGRAM, QID
     Route: 065

REACTIONS (5)
  - Colitis ulcerative [Unknown]
  - Oesophagitis [Unknown]
  - Stomatitis [Unknown]
  - Drug ineffective for unapproved indication [Unknown]
  - Off label use [Unknown]
